FAERS Safety Report 12329469 (Version 1)
Quarter: 2016Q2

REPORT INFORMATION
  Report Type: Spontaneous
  Country: US (occurrence: US)
  Receive Date: 20160503
  Receipt Date: 20160503
  Transmission Date: 20160815
  Serious: No
  Sender: FDA-Public Use
  Company Number: US-JNJFOC-20160415976

PATIENT
  Age: 57 Year
  Sex: Female
  Weight: 76.66 kg

DRUGS (2)
  1. PEPCID AC MAXIMUM STRENGTH [Suspect]
     Active Substance: FAMOTIDINE
     Route: 048
  2. PEPCID AC MAXIMUM STRENGTH [Suspect]
     Active Substance: FAMOTIDINE
     Indication: OESOPHAGEAL PAIN
     Route: 048
     Dates: start: 20160325

REACTIONS (4)
  - Off label use [Recovered/Resolved]
  - Diarrhoea [Recovered/Resolved]
  - Product use issue [Recovered/Resolved]
  - Therapeutic response unexpected [Unknown]

NARRATIVE: CASE EVENT DATE: 20160328
